FAERS Safety Report 6796195-5 (Version None)
Quarter: 2010Q2

REPORT INFORMATION
  Report Type: 
  Country: None (occurrence: None)
  Receive Date: 20100625
  Receipt Date: 20100616
  Transmission Date: 20101027
  Serious: Yes (Hospitalization)
  Sender: FDA-Public Use
  Company Number: US-ABBOTT-10P-163-0652497-00

PATIENT
  Sex: Female
  Weight: 85.806 kg

DRUGS (9)
  1. HUMIRA [Suspect]
     Indication: CROHN'S DISEASE
     Route: 058
     Dates: start: 20090101, end: 20100101
  2. HUMIRA [Suspect]
     Route: 058
     Dates: start: 20100101
  3. ASACOL [Concomitant]
     Indication: CROHN'S DISEASE
     Route: 048
  4. ACTOS [Concomitant]
     Indication: DIABETES MELLITUS
     Route: 048
  5. PAROXETINE [Concomitant]
     Indication: DEPRESSION
  6. AMLODIPINE [Concomitant]
     Indication: HYPERTENSION
  7. DIOVAN [Concomitant]
     Indication: HYPERTENSION
  8. GLYBURIDE [Concomitant]
     Indication: DIABETES MELLITUS
  9. MULTI-VITAMIN [Concomitant]
     Indication: VITAMIN SUPPLEMENTATION

REACTIONS (7)
  - CROHN'S DISEASE [None]
  - DIARRHOEA [None]
  - DRUG INEFFECTIVE [None]
  - FATIGUE [None]
  - GASTROINTESTINAL HAEMORRHAGE [None]
  - INJECTION SITE PAIN [None]
  - RHINORRHOEA [None]
